FAERS Safety Report 20331005 (Version 2)
Quarter: 2022Q1

REPORT INFORMATION
  Report Type: Spontaneous
  Country: US (occurrence: US)
  Receive Date: 20220113
  Receipt Date: 20220208
  Transmission Date: 20220423
  Serious: No
  Sender: FDA-Public Use
  Company Number: US-PFIZER INC-202101797674

PATIENT
  Age: 13 Year
  Sex: Male
  Weight: 29.03 kg

DRUGS (1)
  1. GENOTROPIN [Suspect]
     Active Substance: SOMATROPIN
     Dosage: 2.4 MG, 6 DAYS A WEEK
     Dates: start: 2013

REACTIONS (3)
  - Drug dose omission by device [Unknown]
  - Device issue [Unknown]
  - Device breakage [Unknown]

NARRATIVE: CASE EVENT DATE: 20211208
